FAERS Safety Report 5403814-4 (Version None)
Quarter: 2007Q3

REPORT INFORMATION
  Report Type: 
  Country: None (occurrence: None)
  Receive Date: 20070706
  Receipt Date: 20070320
  Transmission Date: 20080115
  Serious: Yes (Other)
  Sender: FDA-Public Use
  Company Number: 488542

PATIENT
  Age: 66 Year
  Sex: Female

DRUGS (3)
  1. MYCOPHENOLATE MOFETIL [Suspect]
     Indication: DERMATITIS ATOPIC
     Dosage: 1 GRAM DAILY
  2. TACROLIMUS [Concomitant]
  3. PIMECROLIMUS (PIMECROLIMUS) [Concomitant]

REACTIONS (1)
  - HERPES ZOSTER [None]
